FAERS Safety Report 14759239 (Version 3)
Quarter: 2020Q2

REPORT INFORMATION
  Report Type: Spontaneous
  Country: US (occurrence: US)
  Receive Date: 20180413
  Receipt Date: 20200626
  Transmission Date: 20200713
  Serious: Yes (Hospitalization, Other)
  Sender: FDA-Public Use
  Company Number: US-ASTRAZENECA-2018SE44624

PATIENT
  Age: 19841 Day
  Sex: Male

DRUGS (30)
  1. METOPROLOL SUCCINATE. [Concomitant]
     Active Substance: METOPROLOL SUCCINATE
  2. ZOLPIDEM [Concomitant]
     Active Substance: ZOLPIDEM TARTRATE
  3. AMITRIPTYLINE [Concomitant]
     Active Substance: AMITRIPTYLINE
  4. NORVASC [Concomitant]
     Active Substance: AMLODIPINE BESYLATE
  5. METFORMIN [Concomitant]
     Active Substance: METFORMIN HYDROCHLORIDE
  6. CLINDAMYCIN. [Concomitant]
     Active Substance: CLINDAMYCIN
  7. COLACE [Concomitant]
     Active Substance: DOCUSATE SODIUM
  8. NORCO [Concomitant]
     Active Substance: ACETAMINOPHEN\HYDROCODONE BITARTRATE
  9. KOMBIGLYZE XR [Suspect]
     Active Substance: METFORMIN HYDROCHLORIDE\SAXAGLIPTIN HYDROCHLORIDE
     Route: 048
     Dates: start: 2012
  10. ONGLYZA [Suspect]
     Active Substance: SAXAGLIPTIN HYDROCHLORIDE
     Indication: DIABETES MELLITUS
     Route: 048
     Dates: start: 20100809, end: 20170114
  11. ONGLYZA [Suspect]
     Active Substance: SAXAGLIPTIN HYDROCHLORIDE
     Indication: DIABETES MELLITUS
     Route: 048
     Dates: start: 20160114
  12. ASPIRIN. [Concomitant]
     Active Substance: ASPIRIN
  13. MORPHINE [Concomitant]
     Active Substance: MORPHINE
  14. LORAZEPAM. [Concomitant]
     Active Substance: LORAZEPAM
  15. GABAPENTIN. [Concomitant]
     Active Substance: GABAPENTIN
  16. AMARYL [Concomitant]
     Active Substance: GLIMEPIRIDE
  17. AUGMENTIN [Concomitant]
     Active Substance: AMOXICILLIN\CLAVULANATE POTASSIUM
  18. ONGLYZA [Suspect]
     Active Substance: SAXAGLIPTIN HYDROCHLORIDE
     Indication: DIABETES MELLITUS
     Route: 048
     Dates: start: 2012
  19. TAMSULOSIN [Concomitant]
     Active Substance: TAMSULOSIN
  20. PROBIOTIC [Concomitant]
     Active Substance: PROBIOTICS NOS
  21. RAMELTEON [Concomitant]
     Active Substance: RAMELTEON
  22. ONDANSETRON [Concomitant]
     Active Substance: ONDANSETRON
  23. ENOXAPARIN [Concomitant]
     Active Substance: ENOXAPARIN
  24. ATORVASTATIN [Concomitant]
     Active Substance: ATORVASTATIN
  25. PROCHLORPERAZINE. [Concomitant]
     Active Substance: PROCHLORPERAZINE
  26. MULTIVITAMIN [Concomitant]
     Active Substance: VITAMINS
  27. CLOPIDOGREL [Concomitant]
     Active Substance: CLOPIDOGREL BISULFATE
  28. LASIX [Concomitant]
     Active Substance: FUROSEMIDE
  29. RESTORIL [Concomitant]
     Active Substance: TEMAZEPAM
  30. LYRICA [Concomitant]
     Active Substance: PREGABALIN

REACTIONS (6)
  - Left ventricular failure [Unknown]
  - Cardiac failure [Unknown]
  - Cardiovascular disorder [Unknown]
  - Coronary artery stenosis [Unknown]
  - Coronary artery disease [Unknown]
  - Cardiac failure congestive [Unknown]

NARRATIVE: CASE EVENT DATE: 20170511
